FAERS Safety Report 23994690 (Version 1)
Quarter: 2024Q2

REPORT INFORMATION
  Report Type: Report from Study
  Country: ES (occurrence: ES)
  Receive Date: 20240620
  Receipt Date: 20240620
  Transmission Date: 20240716
  Serious: Yes (Hospitalization, Other)
  Sender: FDA-Public Use
  Company Number: ES-002147023-NVSC2024ES111843

PATIENT
  Age: 70 Year
  Sex: Male
  Weight: 132.2 kg

DRUGS (6)
  1. DEFERASIROX [Suspect]
     Active Substance: DEFERASIROX
     Indication: Product used for unknown indication
     Dosage: UNK
     Route: 065
  2. IMETELSTAT [Concomitant]
     Active Substance: IMETELSTAT
     Indication: Myelodysplastic syndrome
     Dosage: UNK
     Route: 065
     Dates: start: 20230519
  3. IMETELSTAT [Concomitant]
     Active Substance: IMETELSTAT
     Dosage: UNK
     Route: 065
     Dates: start: 20231121
  4. IMETELSTAT [Concomitant]
     Active Substance: IMETELSTAT
     Dosage: 7.5 MG/KG, Q4W
     Route: 042
     Dates: start: 20230124, end: 20230509
  5. IMETELSTAT [Concomitant]
     Active Substance: IMETELSTAT
     Dosage: UNK
     Route: 065
     Dates: start: 20230606, end: 20230607
  6. IMETELSTAT [Concomitant]
     Active Substance: IMETELSTAT
     Dosage: 6 MG/KG (CYCLE 5)
     Route: 065
     Dates: start: 20230621

REACTIONS (2)
  - Urinary tract infection [Recovered/Resolved]
  - Alanine aminotransferase increased [Recovered/Resolved]

NARRATIVE: CASE EVENT DATE: 20230606
